FAERS Safety Report 21792976 (Version 1)
Quarter: 2022Q4

REPORT INFORMATION
  Report Type: Spontaneous
  Country: US (occurrence: US)
  Receive Date: 20221229
  Receipt Date: 20221229
  Transmission Date: 20230113
  Serious: Yes (Death, Hospitalization, Other)
  Sender: FDA-Public Use
  Company Number: US-ALKEM LABORATORIES LIMITED-US-ALKEM-2022-14131

PATIENT
  Age: 27 Year
  Sex: Male

DRUGS (1)
  1. SIROLIMUS [Suspect]
     Active Substance: SIROLIMUS
     Indication: Graft versus host disease in skin
     Dosage: 0.5 MILLIGRAM, QD (STABLE DOSE FOR SEVERAL MONTHS)
     Route: 065

REACTIONS (1)
  - Encephalitis eastern equine [Fatal]
